FAERS Safety Report 17473639 (Version 2)
Quarter: 2020Q1

REPORT INFORMATION
  Report Type: Report from Study
  Country: GB (occurrence: GB)
  Receive Date: 20200228
  Receipt Date: 20200306
  Transmission Date: 20200409
  Serious: Yes (Other)
  Sender: FDA-Public Use
  Company Number: NVSC2019GB068321

PATIENT
  Age: 63 Year
  Sex: Male

DRUGS (2)
  1. COSENTYX [Suspect]
     Active Substance: SECUKINUMAB
     Indication: ANKYLOSING SPONDYLITIS
     Dosage: 150 MG, QW
     Route: 058
     Dates: start: 20191111
  2. COSENTYX [Suspect]
     Active Substance: SECUKINUMAB
     Dosage: 150 MG, QD
     Route: 058
     Dates: start: 20200217

REACTIONS (5)
  - Deafness [Not Recovered/Not Resolved]
  - Inappropriate schedule of product administration [Unknown]
  - Cerebrovascular accident [Unknown]
  - Cognitive disorder [Unknown]
  - Prostatitis [Not Recovered/Not Resolved]

NARRATIVE: CASE EVENT DATE: 20191118
